FAERS Safety Report 12861412 (Version 1)
Quarter: 2016Q4

REPORT INFORMATION
  Report Type: Spontaneous
  Country: NL (occurrence: NL)
  Receive Date: 20161019
  Receipt Date: 20161019
  Transmission Date: 20170207
  Serious: Yes (Hospitalization)
  Sender: FDA-Public Use
  Company Number: NL-TEVA-700230ACC

PATIENT
  Age: 64 Year
  Sex: Male
  Weight: 66 kg

DRUGS (3)
  1. CARBOPLATIN INFUUS [Suspect]
     Active Substance: CARBOPLATIN
     Indication: LUNG NEOPLASM MALIGNANT
     Dosage: EXTRA INFO: 1 TIME PER 3 WEEKS
     Route: 042
     Dates: start: 20160920
  2. AMLODIPINE TABLET 10MG [Concomitant]
     Dosage: 10 MILLIGRAM DAILY; 1 TIME DAILY 1 PIECE(S), EXTRA INFO: 10 MG
     Route: 048
     Dates: start: 20160101
  3. PEMETREXED INFUUS [Interacting]
     Active Substance: PEMETREXED
     Indication: LUNG NEOPLASM MALIGNANT
     Dosage: EXTRA INFO: 1 TIME PER 3 WEEKS
     Route: 042
     Dates: start: 20160920

REACTIONS (2)
  - Vertigo [Recovered/Resolved]
  - Drug interaction [Recovered/Resolved]

NARRATIVE: CASE EVENT DATE: 20160924
